FAERS Safety Report 4387358-7 (Version None)
Quarter: 2004Q2

REPORT INFORMATION
  Report Type: 
  Country: None (occurrence: None)
  Receive Date: 20040630
  Receipt Date: 20040414
  Transmission Date: 20050107
  Serious: No
  Sender: FDA-Public Use
  Company Number: US-GLAXOSMITHKLINE-A0507199A

PATIENT
  Age: 68 Year
  Sex: Female

DRUGS (5)
  1. ADVAIR HFA [Suspect]
     Dosage: 1PUFF TWICE PER DAY
     Route: 055
  2. ALBUTEROL [Concomitant]
  3. SYNTHROID [Concomitant]
  4. HYDROCHLOROTHIAZIDE [Concomitant]
  5. OXYGEN [Concomitant]

REACTIONS (3)
  - CONTUSION [None]
  - DYSPNOEA [None]
  - TACHYPNOEA [None]
